FAERS Safety Report 8612957-3 (Version None)
Quarter: 2012Q3

REPORT INFORMATION
  Report Type: 
  Country: None (occurrence: None)
  Receive Date: 20120822
  Receipt Date: 20120720
  Transmission Date: 20120928
  Serious: No
  Sender: FDA-Public Use
  Company Number: US-ALLERGAN-1210056US

PATIENT
  Age: 88 Year
  Sex: Female

DRUGS (1)
  1. SANCTURA XR [Suspect]
     Indication: URINARY INCONTINENCE
     Dosage: 60 MG, QD
     Route: 048

REACTIONS (3)
  - CONSTIPATION [None]
  - URINARY RETENTION [None]
  - ABDOMINAL PAIN UPPER [None]
